FAERS Safety Report 10545112 (Version 3)
Quarter: 2016Q4

REPORT INFORMATION
  Report Type: Spontaneous
  Country: GB (occurrence: GB)
  Receive Date: 20141027
  Receipt Date: 20161115
  Transmission Date: 20170206
  Serious: Yes (Death, Other)
  Sender: FDA-Public Use
  Company Number: GB-PFIZER INC-2014290027

PATIENT
  Age: 37 Year
  Sex: Male
  Weight: 65.2 kg

DRUGS (13)
  1. NITRAZEPAM [Suspect]
     Active Substance: NITRAZEPAM
     Dosage: 3 TABLETS
     Dates: start: 20140729, end: 20140729
  2. DIAZEPAM. [Suspect]
     Active Substance: DIAZEPAM
     Dosage: UNK
     Dates: start: 201407, end: 201407
  3. DIAZEPAM. [Suspect]
     Active Substance: DIAZEPAM
     Dosage: 7 TABLETS
     Dates: start: 20140729, end: 20140729
  4. ECSTASY [Suspect]
     Active Substance: METHYLENEDIOXYMETHAMPHETAMINE
     Dosage: UNK
     Dates: start: 201407, end: 201407
  5. DIAZEPAM. [Suspect]
     Active Substance: DIAZEPAM
     Dosage: THREE FURTHER 10 MG TABLETS
     Dates: start: 20140730, end: 20140730
  6. HEROIN [Suspect]
     Active Substance: DIACETYLMORPHINE
     Dosage: UNK
     Dates: start: 201407, end: 201407
  7. COCAINE [Suspect]
     Active Substance: COCAINE
     Dosage: UNK
  8. IBUPROFEN. [Suspect]
     Active Substance: IBUPROFEN
     Dosage: UNK
     Route: 048
  9. SUBUTEX [Suspect]
     Active Substance: BUPRENORPHINE HYDROCHLORIDE
     Dosage: UNK
  10. NITRAZEPAM [Suspect]
     Active Substance: NITRAZEPAM
     Dosage: UNK
     Dates: start: 201407, end: 201407
  11. ECSTASY [Suspect]
     Active Substance: METHYLENEDIOXYMETHAMPHETAMINE
     Dosage: ONE TABLET
     Dates: start: 20140729, end: 20140729
  12. SUBUTEX [Suspect]
     Active Substance: BUPRENORPHINE HYDROCHLORIDE
     Dosage: UNK
  13. ECSTASY [Suspect]
     Active Substance: METHYLENEDIOXYMETHAMPHETAMINE
     Dosage: 1.5 TABLETS
     Dates: start: 20140730, end: 20140730

REACTIONS (9)
  - Cardiac disorder [Fatal]
  - Pulmonary oedema [Unknown]
  - Hypoxia [Unknown]
  - Overdose [Fatal]
  - Toxicity to various agents [Fatal]
  - Skin lesion [Unknown]
  - Arrhythmia [Unknown]
  - Substance abuse [Recovered/Resolved]
  - Cyanosis [Unknown]

NARRATIVE: CASE EVENT DATE: 201407
